FAERS Safety Report 13853793 (Version 2)
Quarter: 2017Q4

REPORT INFORMATION
  Report Type: Report from Study
  Country: BR (occurrence: BR)
  Receive Date: 20170809
  Receipt Date: 20171106
  Transmission Date: 20180320
  Serious: Yes (Other)
  Sender: FDA-Public Use
  Company Number: PHHY2017BR116397

PATIENT
  Age: 82 Year
  Sex: Female
  Weight: 63 kg

DRUGS (5)
  1. EXELON PATCH [Suspect]
     Active Substance: RIVASTIGMINE
     Indication: DEMENTIA ALZHEIMER^S TYPE
     Dosage: 4.6 MG, QD PATCH 5 (CM2)
     Route: 062
  2. CALCIUM [Concomitant]
     Active Substance: CALCIUM
     Indication: BONE DISORDER
     Dosage: 3 DF, QD 2 YEARS AGO
     Route: 048
  3. SIMVASTATIN. [Concomitant]
     Active Substance: SIMVASTATIN
     Indication: BLOOD CHOLESTEROL ABNORMAL
     Dosage: UNK, QW
     Route: 048
  4. QUETROS [Concomitant]
     Active Substance: QUETIAPINE
     Indication: ANXIETY
     Dosage: 25 MG, QD (FROM 1 YEAR AGO)
     Route: 048
  5. PURAN [Concomitant]
     Active Substance: LEVOTHYROXINE SODIUM
     Indication: THYROID DISORDER
     Dosage: 37.5 MG, QD (2 YEARS AGO)
     Route: 048

REACTIONS (7)
  - Cerebrovascular accident [Unknown]
  - Urinary tract infection [Unknown]
  - Gait inability [Not Recovered/Not Resolved]
  - Lung disorder [Not Recovered/Not Resolved]
  - Application site reaction [Not Recovered/Not Resolved]
  - Mobility decreased [Not Recovered/Not Resolved]
  - Pulmonary oedema [Recovering/Resolving]

NARRATIVE: CASE EVENT DATE: 201611
